FAERS Safety Report 8897326 (Version 1)
Quarter: 2012Q4

REPORT INFORMATION
  Report Type: 
  Country: US (occurrence: US)
  Receive Date: 20121108
  Receipt Date: 20121108
  Transmission Date: 20130627
  Serious: No
  Sender: FDA-Public Use
  Company Number: US-AMGEN-USASP2012025828

PATIENT
  Age: 49 Year
  Sex: Female
  Weight: 74.83 kg

DRUGS (6)
  1. ENBREL [Suspect]
     Indication: PRODUCT USED FOR UNKNOWN INDICATION
     Dosage: 50 mg, qwk
     Route: 058
  2. ACTIVELLA [Concomitant]
  3. VITAMIN E                          /00110501/ [Concomitant]
     Dosage: 1000 IU, UNK
  4. FISH OIL [Concomitant]
  5. MULTIVITAMIN                       /00097801/ [Concomitant]
  6. VITAMIN D3 [Concomitant]

REACTIONS (2)
  - Injection site erythema [Unknown]
  - Injection site rash [Unknown]
